FAERS Safety Report 14322184 (Version 1)
Quarter: 2017Q4

REPORT INFORMATION
  Report Type: Spontaneous
  Country: US (occurrence: US)
  Receive Date: 20171225
  Receipt Date: 20171225
  Transmission Date: 20180321
  Serious: No
  Sender: FDA-Public Use
  Company Number: US-ASTRAZENECA-2017SF29907

PATIENT
  Sex: Female
  Weight: 46.7 kg

DRUGS (4)
  1. SYMBICORT [Suspect]
     Active Substance: BUDESONIDE\FORMOTEROL FUMARATE DIHYDRATE
     Indication: CHRONIC OBSTRUCTIVE PULMONARY DISEASE
     Dosage: 160/4.5 MCG, TWO PUFFS TWO TIMES A DAY
     Route: 055
  2. SYMBICORT [Suspect]
     Active Substance: BUDESONIDE\FORMOTEROL FUMARATE DIHYDRATE
     Indication: CHRONIC OBSTRUCTIVE PULMONARY DISEASE
     Dosage: 160/4.5 MCG, ONE PUFF TWO TIMES A DAY
     Route: 055
  3. PROAIR HFA [Concomitant]
     Active Substance: ALBUTEROL SULFATE
  4. ALBUTEROL SULFATE. [Concomitant]
     Active Substance: ALBUTEROL SULFATE
     Dosage: 200 METERED DOSES, ONE OR TWO PUFFS EVERY 4 TO 6 HOURS, AS NEEDED

REACTIONS (10)
  - Peripheral swelling [Unknown]
  - Feeling abnormal [Unknown]
  - Nausea [Unknown]
  - Intentional product misuse [Unknown]
  - Nasal discomfort [Unknown]
  - Sinusitis [Unknown]
  - Headache [Unknown]
  - Pneumonia [Recovered/Resolved]
  - Dizziness [Unknown]
  - Product quality issue [Unknown]
